FAERS Safety Report 12526465 (Version 3)
Quarter: 2016Q3

REPORT INFORMATION
  Report Type: Spontaneous
  Country: US (occurrence: US)
  Receive Date: 20160705
  Receipt Date: 20160913
  Transmission Date: 20161109
  Serious: No
  Sender: FDA-Public Use
  Company Number: US-PFIZER INC-2016326846

PATIENT
  Age: 70 Year
  Sex: Female
  Weight: 74.84 kg

DRUGS (1)
  1. NICOTROL [Suspect]
     Active Substance: NICOTINE
     Indication: SMOKING CESSATION THERAPY
     Dosage: 1 DF,10MG(4MG) INHALE ONE PUFF BY MOUTH AS NEEDED FOR SMOKING MAXIMUM 16 PER DAY, AS NEEDED
     Route: 055
     Dates: start: 20160610

REACTIONS (4)
  - Throat irritation [Recovered/Resolved]
  - Diarrhoea [Recovering/Resolving]
  - Anxiety [Unknown]
  - Dysgeusia [Unknown]

NARRATIVE: CASE EVENT DATE: 201606
